FAERS Safety Report 15664958 (Version 1)
Quarter: 2018Q4

REPORT INFORMATION
  Report Type: Spontaneous
  Country: DE (occurrence: DE)
  Receive Date: 20181128
  Receipt Date: 20181128
  Transmission Date: 20190205
  Serious: Yes (Other)
  Sender: FDA-Public Use
  Company Number: DE-TASMAN PHARMA, INC.-2018TSM00182

PATIENT
  Age: 15 Year
  Sex: Male

DRUGS (2)
  1. CLOZAPINE. [Suspect]
     Active Substance: CLOZAPINE
     Indication: SCHIZOPHRENIA
     Dosage: 12.5 MG AND TITRATION EVERY SECOND DAY; UP TO 125 MG ON DAY 18
  2. CLOZAPINE. [Suspect]
     Active Substance: CLOZAPINE
     Dosage: 12.5 MG, 1X/DAY

REACTIONS (3)
  - Cardiac failure congestive [Recovered/Resolved]
  - Myocarditis [Recovered/Resolved]
  - Pericardial effusion [Recovered/Resolved]
